FAERS Safety Report 6565102-2 (Version None)
Quarter: 2010Q1

REPORT INFORMATION
  Report Type: 
  Country: None (occurrence: None)
  Receive Date: 20100201
  Receipt Date: 20100127
  Transmission Date: 20100710
  Serious: Yes (Other)
  Sender: FDA-Public Use
  Company Number: A0816076A

PATIENT
  Sex: Female

DRUGS (2)
  1. ADVAIR DISKUS 100/50 [Suspect]
     Dosage: 1PUFF PER DAY
     Route: 055
  2. SPIRIVA [Concomitant]

REACTIONS (3)
  - CATARACT [None]
  - CATARACT OPERATION [None]
  - DISABILITY [None]
